FAERS Safety Report 16893713 (Version 1)
Quarter: 2019Q4

REPORT INFORMATION
  Report Type: Spontaneous
  Country: GB (occurrence: GB)
  Receive Date: 20191008
  Receipt Date: 20191008
  Transmission Date: 20200122
  Serious: Yes (Other)
  Sender: FDA-Public Use
  Company Number: GB-PFIZER INC-2019427341

PATIENT
  Age: 61 Year
  Sex: Female

DRUGS (1)
  1. SUTENT [Suspect]
     Active Substance: SUNITINIB MALATE
     Dosage: UNK

REACTIONS (9)
  - Electrocardiogram ST-T change [Unknown]
  - Arteriospasm coronary [Recovered/Resolved]
  - Ventricular hypokinesia [Unknown]
  - Dyspepsia [Unknown]
  - Nausea [Unknown]
  - Mucosal inflammation [Unknown]
  - Dizziness [Unknown]
  - Cardiomyopathy [Recovered/Resolved]
  - Proteinuria [Unknown]
